FAERS Safety Report 24523871 (Version 3)
Quarter: 2024Q4

REPORT INFORMATION
  Report Type: Spontaneous
  Country: US (occurrence: US)
  Receive Date: 20241018
  Receipt Date: 20241122
  Transmission Date: 20250115
  Serious: Yes (Other)
  Sender: LANTHEUS MEDICAL IMAGING
  Company Number: US-LANTHEUS-LMI-2024-01174

PATIENT
  Age: 58 Year
  Sex: Female
  Weight: 80 kg

DRUGS (2)
  1. CARDIOLITE [Suspect]
     Active Substance: TECHNETIUM TC-99M SESTAMIBI
     Indication: Cardiac stress test
     Dosage: 11.8 MILLICURIE
     Dates: start: 20240715, end: 20240715
  2. METFORMIN [Suspect]
     Active Substance: METFORMIN HYDROCHLORIDE
     Indication: Type 2 diabetes mellitus
     Dosage: UNK
     Dates: end: 20240910

REACTIONS (9)
  - Abnormal loss of weight [Not Recovered/Not Resolved]
  - Retching [Recovering/Resolving]
  - Dysphagia [Recovering/Resolving]
  - Salivary hypersecretion [Recovering/Resolving]
  - Agitation [Unknown]
  - Dysgeusia [Recovering/Resolving]
  - Nausea [Recovered/Resolved]
  - Rash pruritic [Recovered/Resolved]
  - Rash macular [Recovered/Resolved]

NARRATIVE: CASE EVENT DATE: 20240715
